FAERS Safety Report 17639711 (Version 1)
Quarter: 2020Q2

REPORT INFORMATION
  Report Type: Spontaneous
  Country: CN (occurrence: CN)
  Receive Date: 20200407
  Receipt Date: 20200407
  Transmission Date: 20200713
  Serious: Yes (Other)
  Sender: FDA-Public Use
  Company Number: CN-BAYER-2020-055366

PATIENT
  Age: 33 Year
  Sex: Female

DRUGS (5)
  1. INTERFERON [Concomitant]
     Active Substance: INTERFERON
  2. OSELTAMIVIR [Concomitant]
     Active Substance: OSELTAMIVIR
  3. ARBIDOL [Concomitant]
     Active Substance: UMIFENOVIR
  4. AVELOX [Suspect]
     Active Substance: MOXIFLOXACIN HYDROCHLORIDE
     Indication: CORONAVIRUS INFECTION
     Dosage: 0.4 G, QD
     Route: 048
     Dates: start: 20200207, end: 20200222
  5. GAMMA GLOBULIN [Concomitant]
     Active Substance: IMMUNE GLOBULIN NOS

REACTIONS (6)
  - Sepsis [None]
  - Superinfection [Unknown]
  - Pyrexia [None]
  - Off label use [None]
  - Bacterial translocation [None]
  - Product use in unapproved indication [None]

NARRATIVE: CASE EVENT DATE: 20200207
